FAERS Safety Report 20181093 (Version 1)
Quarter: 2021Q4

REPORT INFORMATION
  Report Type: Report from Study
  Country: IN (occurrence: IN)
  Receive Date: 20211214
  Receipt Date: 20211214
  Transmission Date: 20220303
  Serious: Yes (Death, Hospitalization)
  Sender: FDA-Public Use
  Company Number: IN-NOVARTISPH-NVSC2021IN285374

PATIENT
  Age: 7 Year
  Sex: Female

DRUGS (1)
  1. ELTROMBOPAG OLAMINE [Suspect]
     Active Substance: ELTROMBOPAG OLAMINE
     Indication: Aplastic anaemia
     Dosage: 25 MG, QD
     Route: 065
     Dates: start: 20211006

REACTIONS (2)
  - Blood urine present [Fatal]
  - Haematemesis [Fatal]

NARRATIVE: CASE EVENT DATE: 20211126
